FAERS Safety Report 21376348 (Version 1)
Quarter: 2022Q3

REPORT INFORMATION
  Report Type: Spontaneous
  Country: US (occurrence: US)
  Receive Date: 20220926
  Receipt Date: 20220926
  Transmission Date: 20221027
  Serious: No
  Sender: FDA-Public Use
  Company Number: US-LUPIN PHARMACEUTICALS INC.-2022-11370

PATIENT
  Age: 2 Year
  Sex: Male
  Weight: 10 kg

DRUGS (3)
  1. CLOBAZAM [Suspect]
     Active Substance: CLOBAZAM
     Indication: Infantile spasms
     Dosage: 1.25 MILLIGRAM/KILOGRAM, QD
     Route: 065
  2. ZONISAMIDE [Suspect]
     Active Substance: ZONISAMIDE
     Indication: Infantile spasms
     Dosage: 7.5 MILLIGRAM/KILOGRAM, QD
     Route: 065
  3. EPIDIOLEX [Concomitant]
     Active Substance: CANNABIDIOL
     Indication: Seizure
     Dosage: DOSE AT THE TIME OF PRESENTATION
     Route: 065

REACTIONS (1)
  - Off label use [Unknown]
